FAERS Safety Report 22761629 (Version 3)
Quarter: 2023Q4

REPORT INFORMATION
  Report Type: Spontaneous
  Country: US (occurrence: US)
  Receive Date: 20230728
  Receipt Date: 20231025
  Transmission Date: 20240110
  Serious: No
  Sender: FDA-Public Use
  Company Number: US-PFIZER INC-2020243645

PATIENT
  Age: 86 Year
  Sex: Female
  Weight: 51.26 kg

DRUGS (4)
  1. IBRANCE [Suspect]
     Active Substance: PALBOCICLIB
     Indication: Breast cancer metastatic
     Dosage: 125 MG TABLET ONCE A DAY
     Route: 048
  2. IBRANCE [Suspect]
     Active Substance: PALBOCICLIB
     Dosage: 100 MG
  3. IBRANCE [Suspect]
     Active Substance: PALBOCICLIB
     Dosage: 100MG FOR 10 DAYS THEN TRANSFERRED TO 75MG TO COMPLETE A 21-DAY CYCLE
     Route: 048
     Dates: start: 20221122
  4. IBRANCE [Suspect]
     Active Substance: PALBOCICLIB
     Dosage: 75 MG, CYCLIC (75MG FOR 21 DAYS EVERY 28 DAYS)
     Route: 048

REACTIONS (5)
  - Hypoacusis [Unknown]
  - Product dispensing error [Unknown]
  - Off label use [Unknown]
  - Product use issue [Unknown]
  - Product prescribing error [Unknown]

NARRATIVE: CASE EVENT DATE: 20221101
